FAERS Safety Report 16176513 (Version 4)
Quarter: 2019Q2

REPORT INFORMATION
  Report Type: Spontaneous
  Country: CZ (occurrence: CZ)
  Receive Date: 20190409
  Receipt Date: 20190430
  Transmission Date: 20190711
  Serious: Yes (Other)
  Sender: FDA-Public Use
  Company Number: PHHY2019CZ078478

PATIENT
  Age: 10 Year
  Sex: Female

DRUGS (1)
  1. ATORVASTATIN [Suspect]
     Active Substance: ATORVASTATIN
     Indication: TYPE IIB HYPERLIPIDAEMIA
     Dosage: UNK
     Route: 065
     Dates: start: 201003

REACTIONS (1)
  - Hepatic function abnormal [Recovered/Resolved]
